FAERS Safety Report 20975584 (Version 2)
Quarter: 2022Q4

REPORT INFORMATION
  Report Type: Spontaneous
  Country: US (occurrence: US)
  Receive Date: 20220617
  Receipt Date: 20221216
  Transmission Date: 20230112
  Serious: No
  Sender: FDA-Public Use
  Company Number: US-BIOGEN-2022BI01132780

PATIENT
  Sex: Female

DRUGS (1)
  1. TECFIDERA [Suspect]
     Active Substance: DIMETHYL FUMARATE
     Indication: Product used for unknown indication
     Dosage: 120 MG IN AM AND 240 MG IN EVENING
     Route: 050
     Dates: start: 202203

REACTIONS (5)
  - Prescribed underdose [Unknown]
  - Blood pressure increased [Unknown]
  - Weight increased [Unknown]
  - Tooth fracture [Unknown]
  - Bruxism [Unknown]
